FAERS Safety Report 5893108-5 (Version None)
Quarter: 2008Q3

REPORT INFORMATION
  Report Type: 
  Country: None (occurrence: None)
  Receive Date: 20080919
  Receipt Date: 20080910
  Transmission Date: 20090109
  Serious: Yes (Hospitalization)
  Sender: FDA-Public Use
  Company Number: GXKR2008DE08758

PATIENT
  Age: 79 Year
  Sex: Male
  Weight: 77 kg

DRUGS (5)
  1. OMEPRAZOLE [Suspect]
     Indication: ANALGESIC INTERVENTION SUPPORTIVE THERAPY
     Dosage: 20 MG, QD, ORAL
     Route: 048
     Dates: start: 20080612, end: 20080716
  2. DICLOFENAC SODIUM [Concomitant]
  3. TORSEMIDE [Concomitant]
  4. GLYBURIDE [Concomitant]
  5. BROMAZEPAM (BROMAZEPAM) [Concomitant]

REACTIONS (4)
  - BLOOD CULTURE POSITIVE [None]
  - GENERAL PHYSICAL HEALTH DETERIORATION [None]
  - LISTERIOSIS [None]
  - PYREXIA [None]
